FAERS Safety Report 4978383-3 (Version None)
Quarter: 2006Q2

REPORT INFORMATION
  Report Type: 
  Country: None (occurrence: None)
  Receive Date: 20060417
  Receipt Date: 20060410
  Transmission Date: 20061013
  Serious: Yes (Other)
  Sender: FDA-Public Use
  Company Number: HQWYE726310APR06

PATIENT
  Age: 51 Year
  Sex: Female

DRUGS (6)
  1. PANTOPRAZOLE SODIUM [Suspect]
     Dosage: 20 MG 1X PER 1 DAY ORAL
     Route: 048
  2. HYDROXYCHLOROQUINE (HYDROXYCHLOROQUINE) [Concomitant]
  3. DICLOFENAC (DICLOFENAC) [Concomitant]
  4. METHOCARBAMOL [Concomitant]
  5. ACETAMINOPHEN [Concomitant]
  6. A.C. WITH CODEINE (ACETYLSALICYLIC ACID/CAFFEINE/CODEINE PHOSPHATE) [Concomitant]

REACTIONS (1)
  - TORTICOLLIS [None]
